FAERS Safety Report 12099505 (Version 1)
Quarter: 2016Q1

REPORT INFORMATION
  Report Type: Spontaneous
  Country: US (occurrence: US)
  Receive Date: 20160222
  Receipt Date: 20160222
  Transmission Date: 20160526
  Serious: No
  Sender: FDA-Public Use
  Company Number: US-PFIZER INC-2016045323

PATIENT
  Age: 36 Year
  Sex: Male
  Weight: 120 kg

DRUGS (2)
  1. ADVIL PM [Suspect]
     Active Substance: DIPHENHYDRAMINE CITRATE\IBUPROFEN
     Indication: HEADACHE
     Dosage: 2 CAPLETS, [200 MG IBUPROFEN, 38 MG DIPHENHYDRAMINE CITRATE], 1X/DAY BEFORE BED
     Route: 048
     Dates: start: 201501, end: 20160122
  2. ADVIL PM [Suspect]
     Active Substance: DIPHENHYDRAMINE CITRATE\IBUPROFEN
     Indication: INSOMNIA

REACTIONS (2)
  - Oral discomfort [Recovering/Resolving]
  - Angiopathy [Recovering/Resolving]

NARRATIVE: CASE EVENT DATE: 20160122
